FAERS Safety Report 23257648 (Version 1)
Quarter: 2023Q4

REPORT INFORMATION
  Report Type: Spontaneous
  Country: US (occurrence: US)
  Receive Date: 20231204
  Receipt Date: 20231204
  Transmission Date: 20240110
  Serious: Yes (Hospitalization)
  Sender: FDA-Public Use
  Company Number: US-MYLANLABS-2023M1126781

PATIENT
  Age: 48 Year
  Sex: Female

DRUGS (2)
  1. GLIMEPIRIDE [Suspect]
     Active Substance: GLIMEPIRIDE
     Indication: Type 2 diabetes mellitus
     Dosage: 0.5 MILLIGRAM, QD
     Route: 065
  2. CANAGLIFLOZIN [Suspect]
     Active Substance: CANAGLIFLOZIN
     Indication: Type 2 diabetes mellitus
     Dosage: UNK
     Route: 065

REACTIONS (2)
  - Diabetic ketoacidosis [Recovered/Resolved]
  - Hypovolaemia [Recovered/Resolved]
